FAERS Safety Report 7228163-3 (Version None)
Quarter: 2011Q1

REPORT INFORMATION
  Report Type: 
  Country: None (occurrence: None)
  Receive Date: 20110112
  Receipt Date: 20110112
  Transmission Date: 20110831
  Serious: Yes (Death)
  Sender: FDA-Public Use
  Company Number: None

PATIENT
  Age: 22 Year
  Sex: Male
  Weight: 68.0396 kg

DRUGS (2)
  1. RITALIN [Suspect]
     Indication: DEATH
     Dosage: 20 MG 3 PER DAY PO
     Route: 048
     Dates: start: 19990118, end: 20091104
  2. METHPHENIDATE [Concomitant]

REACTIONS (3)
  - BINGE EATING [None]
  - DRUG DEPENDENCE [None]
  - INCORRECT DOSE ADMINISTERED [None]
